FAERS Safety Report 16239377 (Version 1)
Quarter: 2019Q2

REPORT INFORMATION
  Report Type: Spontaneous
  Country: US (occurrence: US)
  Receive Date: 20190425
  Receipt Date: 20190425
  Transmission Date: 20190711
  Serious: Yes (Other)
  Sender: FDA-Public Use
  Company Number: US-TEVA-731844USA

PATIENT
  Age: 53 Year
  Sex: Male

DRUGS (9)
  1. METHOTREXATE. [Suspect]
     Active Substance: METHOTREXATE
     Indication: PSORIASIS
     Dosage: 30MG WEEKLY
     Route: 065
  2. FOLIC ACID. [Concomitant]
     Active Substance: FOLIC ACID
     Indication: PSORIASIS
     Route: 065
  3. CALCIPOTRIOL [Concomitant]
     Active Substance: CALCIPOTRIENE
     Indication: PSORIASIS
     Dosage: 0.005% CREAM
     Route: 065
  4. ALPRAZOLAM. [Concomitant]
     Active Substance: ALPRAZOLAM
     Indication: ANXIETY
     Dosage: 3MG
     Route: 065
  5. DESONIDE. [Concomitant]
     Active Substance: DESONIDE
     Indication: PSORIASIS
     Dosage: 0.05% GEL
     Route: 065
  6. BUPROPION. [Concomitant]
     Active Substance: BUPROPION
     Indication: MAJOR DEPRESSION
     Dosage: 300MG DAILY
     Route: 065
  7. DIPHENHYDRAMINE. [Concomitant]
     Active Substance: DIPHENHYDRAMINE
     Indication: SLEEP DISORDER
     Dosage: 25 TO 50MG
     Route: 065
  8. LEVOMEFOLIC ACID [Interacting]
     Active Substance: LEVOMEFOLIC ACID
     Indication: MAJOR DEPRESSION
     Dosage: 15MG DAILY
     Route: 065
  9. DULOXETINE. [Concomitant]
     Active Substance: DULOXETINE
     Indication: SLEEP DISORDER
     Dosage: 60MG DAILY
     Route: 065

REACTIONS (2)
  - Drug interaction [Recovering/Resolving]
  - Psoriasis [Recovering/Resolving]
